FAERS Safety Report 9633803 (Version 2)
Quarter: 2013Q4

REPORT INFORMATION
  Report Type: Spontaneous
  Country: US (occurrence: US)
  Receive Date: 20131021
  Receipt Date: 20131101
  Transmission Date: 20140711
  Serious: No
  Sender: FDA-Public Use
  Company Number: US-PFIZER INC-2013300509

PATIENT
  Age: 63 Year
  Sex: Female
  Weight: 79.4 kg

DRUGS (3)
  1. LYRICA [Suspect]
     Indication: NEURALGIA
     Dosage: 50 MG, 3X/DAY
     Route: 048
     Dates: start: 201302
  2. LYRICA [Suspect]
     Indication: INTERVERTEBRAL DISC PROTRUSION
     Dosage: 75 MG, 2X/DAY
     Route: 048
     Dates: start: 2013
  3. LANTUS [Concomitant]
     Indication: DIABETES MELLITUS
     Dosage: 20 IU, 1X/DAY

REACTIONS (4)
  - Dizziness [Not Recovered/Not Resolved]
  - Somnolence [Not Recovered/Not Resolved]
  - Hangover [Not Recovered/Not Resolved]
  - Fatigue [Not Recovered/Not Resolved]
